FAERS Safety Report 10219728 (Version 2)
Quarter: 2014Q2

REPORT INFORMATION
  Report Type: Spontaneous
  Country: US (occurrence: US)
  Receive Date: 20140605
  Receipt Date: 20140630
  Transmission Date: 20141212
  Serious: Yes (Other)
  Sender: FDA-Public Use
  Company Number: US-PFIZER INC-2014151497

PATIENT
  Sex: Female

DRUGS (5)
  1. CADUET [Suspect]
     Dosage: 10 MG/20 MG, UNK
  2. BYSTOLIC [Concomitant]
     Dosage: 10 MG, UNK
  3. LABETALOL [Concomitant]
     Dosage: 10 MG, UNK
  4. LORAZEPAM [Concomitant]
     Dosage: 0.5 MG, UNK
  5. ZYPREXA [Concomitant]
     Dosage: 10 MG, UNK

REACTIONS (5)
  - Pain [Unknown]
  - Gait disturbance [Unknown]
  - Injury [Unknown]
  - Dyspnoea [Unknown]
  - Nervous system disorder [Unknown]
